FAERS Safety Report 17619009 (Version 2)
Quarter: 2020Q2

REPORT INFORMATION
  Report Type: Spontaneous
  Country: DE (occurrence: DE)
  Receive Date: 20200403
  Receipt Date: 20200407
  Transmission Date: 20200713
  Serious: Yes (Death)
  Sender: FDA-Public Use
  Company Number: DE-009507513-2003DEU010717

PATIENT
  Age: 74 Year
  Sex: Male

DRUGS (3)
  1. PEMBROLIZUMAB. [Suspect]
     Active Substance: PEMBROLIZUMAB
     Dosage: UNK
     Dates: start: 201811, end: 201902
  2. CARBOPLATIN. [Suspect]
     Active Substance: CARBOPLATIN
     Indication: NON-SMALL CELL LUNG CANCER
     Dosage: UNK
     Dates: start: 201811, end: 201901
  3. PEMETREXED DISODIUM [Interacting]
     Active Substance: PEMETREXED DISODIUM
     Dosage: UNK
     Dates: start: 201811, end: 201902

REACTIONS (2)
  - Disease progression [Fatal]
  - Diffuse alveolar damage [Fatal]
